FAERS Safety Report 4677671-8 (Version None)
Quarter: 2005Q2

REPORT INFORMATION
  Report Type: 
  Country: None (occurrence: None)
  Receive Date: 20050531
  Receipt Date: 20050519
  Transmission Date: 20051028
  Serious: Yes (Other)
  Sender: FDA-Public Use
  Company Number: US-BRISTOL-MYERS SQUIBB COMPANY-12975579

PATIENT
  Age: 72 Year
  Sex: Female

DRUGS (2)
  1. PARAPLATIN [Suspect]
     Indication: OVARIAN CANCER
     Route: 042
     Dates: start: 20050504, end: 20050504
  2. ANZEMET [Concomitant]
     Indication: PREMEDICATION

REACTIONS (6)
  - COMA [None]
  - DYSPHAGIA [None]
  - NAUSEA [None]
  - PULSE ABSENT [None]
  - RESPIRATORY ARREST [None]
  - THROAT IRRITATION [None]
